FAERS Safety Report 9886946 (Version 2)
Quarter: 2014Q2

REPORT INFORMATION
  Report Type: Report from Study
  Country: GB (occurrence: GB)
  Receive Date: 20140211
  Receipt Date: 20140605
  Transmission Date: 20141212
  Serious: Yes (Hospitalization)
  Sender: FDA-Public Use
  Company Number: GB-ROCHE-1346609

PATIENT
  Age: 66 Year
  Sex: Male
  Weight: 70.6 kg

DRUGS (8)
  1. RITUXIMAB [Suspect]
     Indication: B-CELL LYMPHOMA
     Route: 065
  2. CYCLOPHOSPHAMIDE [Suspect]
     Indication: B-CELL LYMPHOMA
     Route: 065
  3. FLUDARABINE [Suspect]
     Indication: B-CELL LYMPHOMA
     Route: 065
  4. PARACETAMOL [Concomitant]
     Indication: PAIN
     Route: 048
     Dates: start: 20110830
  5. MORPHINE [Concomitant]
     Indication: PAIN
     Dosage: 5-10 MG
     Route: 058
     Dates: start: 20110827
  6. MORPHINE [Concomitant]
     Route: 048
     Dates: start: 20110828, end: 20110829
  7. DIAZEPAM [Concomitant]
     Indication: PAIN
     Route: 048
     Dates: start: 20110827, end: 20110829
  8. LANSOPRAZOLE [Concomitant]
     Route: 048
     Dates: start: 20110830, end: 20130503

REACTIONS (2)
  - Headache [Recovered/Resolved]
  - Photophobia [Recovered/Resolved]
